FAERS Safety Report 13064288 (Version 2)
Quarter: 2017Q1

REPORT INFORMATION
  Report Type: Report from Study
  Country: None (occurrence: DE)
  Receive Date: 20161227
  Receipt Date: 20170130
  Transmission Date: 20170428
  Serious: Yes (Hospitalization)
  Sender: FDA-Public Use
  Company Number: DE-ABBVIE-16K-062-1659075-00

PATIENT
  Age: 33 Year
  Sex: Female

DRUGS (2)
  1. HUMIRA [Suspect]
     Active Substance: ADALIMUMAB
     Indication: ANKYLOSING SPONDYLITIS
     Route: 058
     Dates: start: 20100301, end: 201603
  2. HUMIRA [Suspect]
     Active Substance: ADALIMUMAB
     Route: 058
     Dates: start: 20161023

REACTIONS (6)
  - Breech presentation [Unknown]
  - Joint stiffness [Unknown]
  - Exposure during pregnancy [Unknown]
  - Rheumatic disorder [Unknown]
  - Arthralgia [Unknown]
  - Live birth [Unknown]

NARRATIVE: CASE EVENT DATE: 2016
